FAERS Safety Report 15012781 (Version 2)
Quarter: 2018Q2

REPORT INFORMATION
  Report Type: Spontaneous
  Country: US (occurrence: US)
  Receive Date: 20180614
  Receipt Date: 20180623
  Transmission Date: 20180711
  Serious: Yes (Hospitalization, Other)
  Sender: FDA-Public Use
  Company Number: US-OTSUKA-2018_015460

PATIENT
  Sex: Male

DRUGS (6)
  1. ABILIFY [Suspect]
     Active Substance: ARIPIPRAZOLE
     Indication: BIPOLAR DISORDER
  2. ABILIFY [Suspect]
     Active Substance: ARIPIPRAZOLE
     Indication: ANXIETY
     Dosage: 5 MG, QD
     Route: 065
     Dates: start: 2012, end: 2016
  3. ABILIFY [Suspect]
     Active Substance: ARIPIPRAZOLE
     Indication: PERSONALITY DISORDER
  4. ABILIFY [Suspect]
     Active Substance: ARIPIPRAZOLE
     Indication: MAJOR DEPRESSION
  5. ABILIFY [Suspect]
     Active Substance: ARIPIPRAZOLE
     Indication: SOCIAL ANXIETY DISORDER
  6. ABILIFY [Suspect]
     Active Substance: ARIPIPRAZOLE
     Indication: SCHIZOPHRENIA

REACTIONS (13)
  - Injury [Unknown]
  - Compulsive sexual behaviour [Recovered/Resolved]
  - Gambling disorder [Recovered/Resolved]
  - Mental disorder [Unknown]
  - Suicide attempt [Recovered/Resolved]
  - Sexual dysfunction [Recovered/Resolved]
  - Suicidal ideation [Recovered/Resolved]
  - Neuropsychiatric symptoms [Unknown]
  - Compulsive shopping [Recovered/Resolved]
  - Emotional distress [Unknown]
  - Economic problem [Unknown]
  - Sexually transmitted disease [Unknown]
  - Product use in unapproved indication [Unknown]
